FAERS Safety Report 5857407-5 (Version None)
Quarter: 2008Q3

REPORT INFORMATION
  Report Type: 
  Country: None (occurrence: None)
  Receive Date: 20080825
  Receipt Date: 20080825
  Transmission Date: 20090109
  Serious: No
  Sender: FDA-Public Use
  Company Number: None

PATIENT
  Sex: Female
  Weight: 86.637 kg

DRUGS (1)
  1. TREXIMET [Suspect]
     Indication: MIGRAINE
     Dosage: 1 PILL 1 TIME PO
     Route: 048
     Dates: start: 20080822, end: 20080822

REACTIONS (5)
  - HYPERHIDROSIS [None]
  - MUSCULOSKELETAL STIFFNESS [None]
  - PARAESTHESIA [None]
  - SKIN BURNING SENSATION [None]
  - THROAT TIGHTNESS [None]
